FAERS Safety Report 11200900 (Version 3)
Quarter: 2015Q3

REPORT INFORMATION
  Report Type: Spontaneous
  Country: US (occurrence: US)
  Receive Date: 20150618
  Receipt Date: 20150821
  Transmission Date: 20151125
  Serious: Yes (Other)
  Sender: FDA-Public Use
  Company Number: US-ALLERGAN-1511287US

PATIENT
  Age: 59 Year
  Sex: Male
  Weight: 125.62 kg

DRUGS (5)
  1. XALATAN [Concomitant]
     Active Substance: LATANOPROST
     Indication: GLAUCOMATOUS OPTIC DISC ATROPHY
     Route: 047
  2. AZOPT [Concomitant]
     Active Substance: BRINZOLAMIDE
     Indication: GLAUCOMATOUS OPTIC DISC ATROPHY
     Dosage: 1 GTT, BID
     Route: 047
  3. ALPHAGAN P [Suspect]
     Active Substance: BRIMONIDINE TARTRATE
     Indication: GLAUCOMATOUS OPTIC DISC ATROPHY
     Dosage: 1 GTT, BID
     Route: 047
     Dates: start: 2009
  4. ISTALOL [Concomitant]
     Active Substance: TIMOLOL MALEATE
     Indication: GLAUCOMATOUS OPTIC DISC ATROPHY
     Dosage: 1 GTT, BID
     Route: 047
  5. PRED FORTE [Suspect]
     Active Substance: PREDNISOLONE ACETATE
     Indication: HYPOTONY OF EYE
     Dosage: 1 GTT, BID
     Route: 047

REACTIONS (5)
  - Subretinal fluid [Unknown]
  - Retinal detachment [Unknown]
  - Off label use [Unknown]
  - Intraocular pressure decreased [Unknown]
  - Vision blurred [Unknown]
